FAERS Safety Report 12536828 (Version 1)
Quarter: 2016Q3

REPORT INFORMATION
  Report Type: Report from Study
  Country: JP (occurrence: JP)
  Receive Date: 20160707
  Receipt Date: 20160707
  Transmission Date: 20161109
  Serious: Yes (Hospitalization)
  Sender: FDA-Public Use
  Company Number: JP-SA-2016SA122793

PATIENT
  Age: 74 Year
  Sex: Male
  Weight: 56.5 kg

DRUGS (10)
  1. LIVALO [Concomitant]
     Active Substance: PITAVASTATIN CALCIUM
     Dates: end: 20120905
  2. TERBINAFINE. [Concomitant]
     Active Substance: TERBINAFINE
     Dates: start: 20120515, end: 20120807
  3. VEEN-3G [Concomitant]
     Dates: start: 20120727, end: 20120727
  4. FEBURIC [Concomitant]
     Active Substance: FEBUXOSTAT
     Dates: start: 20120419, end: 20120905
  5. PLAVIX [Suspect]
     Active Substance: CLOPIDOGREL BISULFATE
     Indication: ARTERIOSCLEROSIS
     Route: 065
     Dates: start: 20111103, end: 20120905
  6. PLAVIX [Suspect]
     Active Substance: CLOPIDOGREL BISULFATE
     Indication: ARTERIOSCLEROSIS
     Route: 065
     Dates: end: 20111102
  7. PURSENNID [Concomitant]
     Active Substance: SENNOSIDES A AND B
     Dates: start: 20120711, end: 20120905
  8. COCARL [Concomitant]
     Active Substance: ACETAMINOPHEN
     Dates: start: 20120727, end: 20120807
  9. SODIUM BICARBONATE. [Concomitant]
     Active Substance: SODIUM BICARBONATE
     Dates: start: 20120727, end: 20120727
  10. ROCEPHIN [Concomitant]
     Active Substance: CEFTRIAXONE SODIUM
     Dates: start: 20120727, end: 20120727

REACTIONS (1)
  - Drug-induced liver injury [Recovered/Resolved]

NARRATIVE: CASE EVENT DATE: 20120806
